FAERS Safety Report 20386346 (Version 2)
Quarter: 2022Q3

REPORT INFORMATION
  Report Type: Report from Study
  Country: FR (occurrence: FR)
  Receive Date: 20220127
  Receipt Date: 20220805
  Transmission Date: 20221027
  Serious: No
  Sender: FDA-Public Use
  Company Number: FR-PFIZER INC-202200082617

PATIENT
  Sex: Male
  Weight: 86 kg

DRUGS (1)
  1. AVIBACTAM SODIUM\CEFTAZIDIME [Suspect]
     Active Substance: AVIBACTAM SODIUM\CEFTAZIDIME
     Indication: Product used for unknown indication
     Dosage: 2 G, TID
     Dates: start: 20210816, end: 20210830

REACTIONS (2)
  - Melaena [Recovered/Resolved]
  - Globulins decreased [Recovered/Resolved]

NARRATIVE: CASE EVENT DATE: 20210906
